FAERS Safety Report 16703711 (Version 6)
Quarter: 2020Q4

REPORT INFORMATION
  Report Type: Report from Study
  Country: CO (occurrence: CO)
  Receive Date: 20190814
  Receipt Date: 20201113
  Transmission Date: 20210113
  Serious: Yes (Death, Hospitalization, Other)
  Sender: FDA-Public Use
  Company Number: CO-INCYTE CORPORATION-2019IN008088

PATIENT

DRUGS (2)
  1. JAKAVI [Suspect]
     Active Substance: RUXOLITINIB
     Indication: MYELOFIBROSIS
     Dosage: 20 MG, QD
     Route: 048
     Dates: start: 20181217
  2. JAKAVI [Suspect]
     Active Substance: RUXOLITINIB
     Dosage: 20 MG, QD (ONCE DAILY)
     Route: 048

REACTIONS (17)
  - Inappropriate schedule of product administration [Unknown]
  - Gastritis [Unknown]
  - Hypoaesthesia [Recovered/Resolved]
  - Dysuria [Unknown]
  - Splenomegaly [Unknown]
  - Blood creatinine increased [Recovered/Resolved]
  - Diabetes mellitus [Recovered/Resolved]
  - Haemoglobin decreased [Unknown]
  - Pain [Unknown]
  - Ligament sprain [Unknown]
  - Renal cyst [Unknown]
  - Nephrolithiasis [Unknown]
  - Death [Fatal]
  - Gait inability [Unknown]
  - Systemic lupus erythematosus [Unknown]
  - Renal failure [Unknown]
  - Renal atrophy [Unknown]

NARRATIVE: CASE EVENT DATE: 20181217
